FAERS Safety Report 20155618 (Version 1)
Quarter: 2021Q4

REPORT INFORMATION
  Report Type: Spontaneous
  Country: US (occurrence: US)
  Receive Date: 20211207
  Receipt Date: 20211207
  Transmission Date: 20220303
  Serious: No
  Sender: FDA-Public Use
  Company Number: US-PFIZER INC-202101648482

PATIENT
  Age: 76 Year
  Sex: Female
  Weight: 54.88 kg

DRUGS (1)
  1. IBRANCE [Suspect]
     Active Substance: PALBOCICLIB
     Indication: Breast cancer female
     Dosage: 100 MG, CYCLIC
     Dates: start: 202007

REACTIONS (5)
  - Pain of skin [Unknown]
  - Skin burning sensation [Unknown]
  - Macule [Unknown]
  - Nail disorder [Unknown]
  - Alopecia [Unknown]
